FAERS Safety Report 5623985-4 (Version None)
Quarter: 2008Q1

REPORT INFORMATION
  Report Type: 
  Country: None (occurrence: None)
  Receive Date: 20080213
  Receipt Date: 20080201
  Transmission Date: 20080703
  Serious: Yes (Hospitalization)
  Sender: FDA-Public Use
  Company Number: DE-WYE-G00984308

PATIENT
  Sex: Female

DRUGS (1)
  1. TREVILOR RETARD [Suspect]
     Dosage: 225 MG/ DAY
     Route: 048

REACTIONS (1)
  - GALLBLADDER OPERATION [None]
